FAERS Safety Report 15753407 (Version 2)
Quarter: 2018Q4

REPORT INFORMATION
  Report Type: Spontaneous
  Country: US (occurrence: US)
  Receive Date: 20181222
  Receipt Date: 20181222
  Transmission Date: 20190205
  Serious: No
  Sender: FDA-Public Use
  Company Number: US-MALLINCKRODT-T201800486

PATIENT
  Sex: Female
  Weight: 63 kg

DRUGS (2)
  1. FENTANYL TRANSDERMAL SYSTEM [Suspect]
     Active Substance: FENTANYL
     Indication: PAIN
     Dosage: 75 MCG/HR, EVERY THREE DAYS
     Route: 062
  2. FENTANYL TRANSDERMAL SYSTEM [Suspect]
     Active Substance: FENTANYL
     Indication: BACK PAIN
     Dosage: 75 MCG EVERY OTHER DAY
     Route: 062

REACTIONS (6)
  - Mobility decreased [Unknown]
  - Crying [Unknown]
  - Depression [Unknown]
  - Withdrawal syndrome [Unknown]
  - Product dose omission [Unknown]
  - Negative thoughts [Unknown]
